FAERS Safety Report 7972556-3 (Version None)
Quarter: 2011Q4

REPORT INFORMATION
  Report Type: 
  Country: None (occurrence: None)
  Receive Date: 20111209
  Receipt Date: 20111202
  Transmission Date: 20120403
  Serious: Yes (Disabling)
  Sender: FDA-Public Use
  Company Number: 2011MA012296

PATIENT
  Sex: Male

DRUGS (6)
  1. CROMOLYN SODIUM [Concomitant]
  2. PRAMIPEXOLE DIHYCHLLORIDE [Suspect]
     Indication: RESTLESS LEGS SYNDROME
     Dosage: 125 MCG;QD;PO
     Route: 048
     Dates: start: 20110216, end: 20110517
  3. ESOMEPRAZOLE MAGNESIUM [Concomitant]
  4. GAVISON ADVANCED [Concomitant]
  5. AMITRIPTYLINE HCL [Concomitant]
  6. FEXOFENADINE [Concomitant]

REACTIONS (1)
  - IVTH NERVE PARALYSIS [None]
